FAERS Safety Report 6345919-X (Version None)
Quarter: 2009Q3

REPORT INFORMATION
  Report Type: 
  Country: None (occurrence: None)
  Receive Date: 20090909
  Receipt Date: 20090901
  Transmission Date: 20100115
  Serious: Yes (Other)
  Sender: FDA-Public Use
  Company Number: B0519616A

PATIENT
  Age: 73 Year
  Sex: Male

DRUGS (5)
  1. REQUIP [Suspect]
     Indication: PARKINSON'S DISEASE
     Dosage: .5MG THREE TIMES PER DAY
     Route: 048
     Dates: start: 20071113
  2. MENESIT [Concomitant]
     Indication: PARKINSON'S DISEASE
     Dosage: 100MG TWICE PER DAY
     Route: 048
     Dates: start: 20071113, end: 20080226
  3. MAGMITT [Concomitant]
     Indication: CONSTIPATION
     Dosage: 330MG THREE TIMES PER DAY
     Route: 048
     Dates: start: 20071113
  4. METHYCOBAL [Concomitant]
     Dosage: 500MCG THREE TIMES PER DAY
     Route: 048
  5. WARFARIN SODIUM [Concomitant]
     Indication: ATRIAL FIBRILLATION

REACTIONS (2)
  - ROAD TRAFFIC ACCIDENT [None]
  - SUDDEN ONSET OF SLEEP [None]
